FAERS Safety Report 5559191-1 (Version None)
Quarter: 2007Q4

REPORT INFORMATION
  Report Type: 
  Country: None (occurrence: None)
  Receive Date: 20071130
  Receipt Date: 20070815
  Transmission Date: 20080405
  Serious: No
  Sender: FDA-Public Use
  Company Number: US200708003719

PATIENT
  Age: 65 Year
  Sex: Male
  Weight: 131.5 kg

DRUGS (6)
  1. BYETTA [Suspect]
     Indication: WEIGHT CONTROL
     Dosage: 5 UG, SUBCUTANEOUS ; 10 UG, DAILY (1/D) ; 20 UG, OTHER
     Route: 058
     Dates: start: 20070101, end: 20070101
  2. BYETTA [Suspect]
     Indication: WEIGHT CONTROL
     Dosage: 5 UG, SUBCUTANEOUS ; 10 UG, DAILY (1/D) ; 20 UG, OTHER
     Route: 058
     Dates: start: 20070815, end: 20070815
  3. BYETTA [Suspect]
     Indication: WEIGHT CONTROL
     Dosage: 5 UG, SUBCUTANEOUS ; 10 UG, DAILY (1/D) ; 20 UG, OTHER
     Route: 058
     Dates: start: 20070101
  4. GLUCOPHAGE XR (METFORMIN HYDROCHLORIDE) [Concomitant]
  5. STARLIX [Concomitant]
  6. ACTOS /USA/ (PIOGLITAZONE HYDROCHLORIDE) [Concomitant]

REACTIONS (1)
  - INCORRECT DOSE ADMINISTERED [None]
